APPROVED DRUG PRODUCT: CROMOLYN SODIUM
Active Ingredient: CROMOLYN SODIUM
Strength: 10MG/ML
Dosage Form/Route: SOLUTION;INHALATION
Application: A075333 | Product #001
Applicant: HIKMA PHARMACEUTICALS USA INC
Approved: Apr 30, 2002 | RLD: No | RS: No | Type: DISCN